FAERS Safety Report 4727424-7 (Version None)
Quarter: 2005Q3

REPORT INFORMATION
  Report Type: 
  Country: None (occurrence: None)
  Receive Date: 20050727
  Receipt Date: 20050727
  Transmission Date: 20060218
  Serious: Yes (Hospitalization)
  Sender: FDA-Public Use
  Company Number: None

PATIENT
  Age: 81 Year
  Sex: Female
  Weight: 92 kg

DRUGS (14)
  1. WARFARIN [Suspect]
     Indication: ATRIAL FIBRILLATION
     Dosage: 5 MG DAILY
     Dates: end: 20050220
  2. ZESTORETIC [Concomitant]
  3. PROCARDIA [Concomitant]
  4. LASIX [Concomitant]
  5. ALBUTEROL [Concomitant]
  6. OSCAL [Concomitant]
  7. FOSAMAX [Concomitant]
  8. TOPROL-XL [Concomitant]
  9. FLOVENT [Concomitant]
  10. HEMOCYTE [Concomitant]
  11. ALLOPURINOL [Concomitant]
  12. LIPITOR [Concomitant]
  13. AMARYL [Concomitant]
  14. ZETIA [Concomitant]

REACTIONS (4)
  - ATRIAL FIBRILLATION [None]
  - CONTUSION [None]
  - DRUG LEVEL BELOW THERAPEUTIC [None]
  - HAEMATOMA [None]
